FAERS Safety Report 4656012-6 (Version None)
Quarter: 2005Q2

REPORT INFORMATION
  Report Type: 
  Country: None (occurrence: None)
  Receive Date: 20050506
  Receipt Date: 20050506
  Transmission Date: 20051028
  Serious: No
  Sender: FDA-Public Use
  Company Number: None

PATIENT

DRUGS (1)
  1. DURACT [Suspect]

REACTIONS (22)
  - ACTIVITIES OF DAILY LIVING IMPAIRED [None]
  - ANOREXIA [None]
  - ASTHENIA [None]
  - COLITIS [None]
  - COORDINATION ABNORMAL [None]
  - FALL [None]
  - GASTROOESOPHAGEAL REFLUX DISEASE [None]
  - GENERAL PHYSICAL HEALTH DETERIORATION [None]
  - HAEMORRHAGE [None]
  - IMPAIRED HEALING [None]
  - INSOMNIA [None]
  - INTESTINAL HAEMORRHAGE [None]
  - NAUSEA [None]
  - NERVOUSNESS [None]
  - ORAL INTAKE REDUCED [None]
  - PHARMACEUTICAL PRODUCT COMPLAINT [None]
  - PHOBIA [None]
  - SKIN ATROPHY [None]
  - SKIN EXFOLIATION [None]
  - THERAPY NON-RESPONDER [None]
  - ULCER [None]
  - WEIGHT DECREASED [None]
